FAERS Safety Report 10101662 (Version 2)
Quarter: 2014Q2

REPORT INFORMATION
  Report Type: Report from Study
  Country: AU (occurrence: AU)
  Receive Date: 20140424
  Receipt Date: 20140424
  Transmission Date: 20141212
  Serious: Yes (Hospitalization)
  Sender: FDA-Public Use
  Company Number: AU-ROCHE-1251554

PATIENT
  Age: 81 Year
  Sex: Male

DRUGS (3)
  1. RANIBIZUMAB [Suspect]
     Indication: PRODUCT USED FOR UNKNOWN INDICATION
     Dosage: 0.5MG/0.05ML
     Route: 050
     Dates: start: 20111018
  2. RANIBIZUMAB [Suspect]
     Dosage: 0.5MG/0.05ML
     Route: 050
     Dates: start: 20130109
  3. RANIBIZUMAB [Suspect]
     Dosage: 0.5MG/0.05ML
     Route: 050
     Dates: start: 20130220

REACTIONS (1)
  - Cerebrovascular accident [Recovered/Resolved]
